FAERS Safety Report 9362107 (Version 2)
Quarter: 2013Q3

REPORT INFORMATION
  Report Type: Report from Study
  Country: JP (occurrence: JP)
  Receive Date: 20130621
  Receipt Date: 20130712
  Transmission Date: 20140515
  Serious: Yes (Hospitalization)
  Sender: FDA-Public Use
  Company Number: JP-BAXTER-2013BAX022772

PATIENT
  Age: 53 Year
  Sex: Female

DRUGS (16)
  1. PALONOSETRON HYDROCHLORIDE [Concomitant]
     Indication: PRODUCT USED FOR UNKNOWN INDICATION
     Route: 065
     Dates: start: 20120604, end: 20120604
  2. DEXAMETHASONE SODIUM PHOSPHATE [Concomitant]
     Indication: PRODUCT USED FOR UNKNOWN INDICATION
     Route: 065
     Dates: start: 20130514
  3. ALPRAZOLAM [Concomitant]
     Indication: PRODUCT USED FOR UNKNOWN INDICATION
     Route: 065
     Dates: start: 20040314
  4. HEPARINOID [Concomitant]
     Indication: PRODUCT USED FOR UNKNOWN INDICATION
     Route: 065
     Dates: start: 20050531
  5. DEXAMETHASONE VALERATE [Concomitant]
     Indication: PRODUCT USED FOR UNKNOWN INDICATION
     Route: 065
     Dates: start: 20050531
  6. CYCLOPHOSPHAMIDE FOR INJECTION, USP [Suspect]
     Indication: HER-2 POSITIVE BREAST CANCER
     Dosage: 860 MG/BODY VIAL
     Route: 065
     Dates: start: 20130514
  7. CYCLOPHOSPHAMIDE FOR INJECTION, USP [Suspect]
     Dosage: 860 MG/KG
     Route: 065
     Dates: start: 20130604
  8. CYCLOPHOSPHAMIDE FOR INJECTION, USP [Suspect]
     Route: 065
     Dates: start: 20130625
  9. EPIRUBICIN [Suspect]
     Indication: HER-2 POSITIVE BREAST CANCER
     Dosage: 170 MG/BODY VIAL
     Route: 065
     Dates: start: 20130514
  10. EPIRUBICIN [Suspect]
     Dosage: 170 MG/BODY VIAL
     Route: 065
     Dates: start: 20130604
  11. EPIRUBICIN [Suspect]
     Route: 065
     Dates: start: 20130625
  12. FLUOROURACIL [Suspect]
     Indication: HER-2 POSITIVE BREAST CANCER
     Dosage: 860 MG/KG
     Route: 065
     Dates: start: 20130514
  13. FLUOROURACIL [Suspect]
     Route: 065
     Dates: start: 20130604
  14. FLUOROURACIL [Suspect]
     Route: 065
     Dates: start: 20130625
  15. UREA [Concomitant]
     Indication: PRODUCT USED FOR UNKNOWN INDICATION
     Route: 065
     Dates: start: 20091126
  16. ECONAZOLE NITRATE [Concomitant]
     Indication: PRODUCT USED FOR UNKNOWN INDICATION
     Route: 065
     Dates: start: 20130409

REACTIONS (1)
  - Embolism venous [Recovering/Resolving]
